FAERS Safety Report 15359322 (Version 1)
Quarter: 2018Q3

REPORT INFORMATION
  Report Type: Spontaneous
  Country: FR (occurrence: FR)
  Receive Date: 20180907
  Receipt Date: 20180907
  Transmission Date: 20181010
  Serious: Yes (Hospitalization)
  Sender: FDA-Public Use
  Company Number: FR-SUN PHARMACEUTICAL INDUSTRIES LTD-2018R1-183701

PATIENT
  Age: 44 Year
  Sex: Female

DRUGS (5)
  1. MYCOSTER [Concomitant]
     Active Substance: CICLOPIROX\CICLOPIROX OLAMINE
     Indication: PRODUCT USED FOR UNKNOWN INDICATION
     Dosage: UNK
     Route: 003
  2. PARACETAMOL [Suspect]
     Active Substance: ACETAMINOPHEN
     Indication: NEURALGIA
     Dosage: UNK
     Route: 048
     Dates: start: 20180525, end: 20180703
  3. CODEINE [Suspect]
     Active Substance: CODEINE
     Indication: NEURALGIA
     Dosage: UNK
     Route: 048
     Dates: start: 20180525, end: 20180703
  4. PHYTOTHERAPIE [Concomitant]
     Indication: MENOPAUSE
     Dosage: UNK
     Route: 048
  5. IXPRIM [Suspect]
     Active Substance: ACETAMINOPHEN\TRAMADOL HYDROCHLORIDE
     Indication: NEURALGIA
     Dosage: UNK
     Route: 048
     Dates: start: 20180525, end: 20180703

REACTIONS (1)
  - Meningitis aseptic [Recovered/Resolved]

NARRATIVE: CASE EVENT DATE: 201807
